FAERS Safety Report 19283863 (Version 4)
Quarter: 2022Q4

REPORT INFORMATION
  Report Type: Spontaneous
  Country: US (occurrence: US)
  Receive Date: 20210521
  Receipt Date: 20221110
  Transmission Date: 20230112
  Serious: Yes (Disabling)
  Sender: FDA-Public Use
  Company Number: US-PFIZER INC-2021530191

PATIENT
  Age: 63 Year
  Sex: Female

DRUGS (1)
  1. XELJANZ [Suspect]
     Active Substance: TOFACITINIB CITRATE
     Dosage: 5 MG, 2X/DAY

REACTIONS (5)
  - Hearing disability [Unknown]
  - Memory impairment [Unknown]
  - Pain in extremity [Unknown]
  - Musculoskeletal stiffness [Unknown]
  - Product dose omission issue [Unknown]
